FAERS Safety Report 5643460-0 (Version None)
Quarter: 2008Q1

REPORT INFORMATION
  Report Type: 
  Country: None (occurrence: None)
  Receive Date: 20080228
  Receipt Date: 20080220
  Transmission Date: 20080703
  Serious: Yes (Life-Threatening)
  Sender: FDA-Public Use
  Company Number: IT-PFIZER INC-2008015620

PATIENT
  Sex: Male

DRUGS (1)
  1. METHYLPREDNISOLONE 16MG TAB [Suspect]

REACTIONS (1)
  - ACNE [None]
